FAERS Safety Report 13332868 (Version 2)
Quarter: 2017Q2

REPORT INFORMATION
  Report Type: Spontaneous
  Country: US (occurrence: US)
  Receive Date: 20170314
  Receipt Date: 20170619
  Transmission Date: 20170830
  Serious: No
  Sender: FDA-Public Use
  Company Number: US-PFIZER INC-2017108695

PATIENT
  Age: 77 Year
  Sex: Female
  Weight: 82 kg

DRUGS (3)
  1. LATANOPROST. [Suspect]
     Active Substance: LATANOPROST
     Indication: INTRAOCULAR PRESSURE INCREASED
     Dosage: UNK UNK, 1X/DAY, 125 MCG/2.5ML, ONCE EVERY NIGHT AT BED TIME
     Dates: start: 201703
  2. LATANOPROST. [Suspect]
     Active Substance: LATANOPROST
     Dosage: UNK UNK, 1X/DAY
     Dates: start: 20170103, end: 20170113
  3. SOTALOL. [Concomitant]
     Active Substance: SOTALOL
     Dosage: UNK
     Dates: start: 201403

REACTIONS (2)
  - Eye swelling [Recovered/Resolved]
  - Foreign body in eye [Recovered/Resolved]

NARRATIVE: CASE EVENT DATE: 20170103
